FAERS Safety Report 4602431-3 (Version None)
Quarter: 2005Q1

REPORT INFORMATION
  Report Type: 
  Country: None (occurrence: None)
  Receive Date: 20050307
  Receipt Date: 20050223
  Transmission Date: 20050727
  Serious: Yes (Hospitalization)
  Sender: FDA-Public Use
  Company Number: HQWYE731401MAR05

PATIENT
  Sex: Male

DRUGS (1)
  1. ADVIL [Suspect]
     Indication: GASTROENTERITIS VIRAL
     Dosage: 3 TABLET 1X PER 1 DAY
     Dates: start: 20050129

REACTIONS (2)
  - DYSSTASIA [None]
  - RENAL IMPAIRMENT [None]
